FAERS Safety Report 9775424 (Version 4)
Quarter: 2014Q2

REPORT INFORMATION
  Report Type: Report from Study
  Country: JP (occurrence: JP)
  Receive Date: 20131220
  Receipt Date: 20140520
  Transmission Date: 20141212
  Serious: Yes (Hospitalization)
  Sender: FDA-Public Use
  Company Number: JP-NAPPMUNDI-GBR-2013-0016713

PATIENT
  Age: 71 Year
  Sex: Female

DRUGS (22)
  1. OXYCODONE HCL PR TABLET [Suspect]
     Indication: CANCER PAIN
     Dosage: 40 MG, BID
     Route: 048
     Dates: start: 20110228, end: 20131210
  2. OXYCODONE HCL PR TABLET [Suspect]
     Dosage: 40 MG, BID
     Route: 048
     Dates: start: 20131211
  3. ENDOXAN                            /00021101/ [Suspect]
     Indication: PLASMA CELL MYELOMA
     Dosage: 50 MG, BID
     Route: 048
     Dates: start: 20121002, end: 20131210
  4. NALDEMEDINE [Suspect]
     Indication: CONSTIPATION
     Dosage: 1 DF, UNK
     Route: 048
     Dates: start: 20131210, end: 20131210
  5. LENADEX [Suspect]
     Indication: PLASMA CELL MYELOMA
     Dosage: 8 MG, DAILY
     Route: 048
     Dates: start: 20120410
  6. VELCADE [Suspect]
     Indication: PLASMA CELL MYELOMA
     Dosage: UNK
     Route: 042
     Dates: start: 20120328
  7. BAKTAR [Concomitant]
     Indication: PROPHYLAXIS
     Dosage: 1 DF, DAILY
     Route: 048
     Dates: start: 20110318
  8. MOHRUS [Concomitant]
     Indication: SPINAL COMPRESSION FRACTURE
     Dosage: 10 MG, DAILY
     Route: 061
     Dates: start: 20110228, end: 20131210
  9. HYPEN                              /00613801/ [Concomitant]
     Indication: PLASMA CELL MYELOMA
     Dosage: 400 MG, DAILY
     Route: 048
     Dates: start: 20110427
  10. PARIET [Concomitant]
     Indication: PROPHYLAXIS
     Dosage: 10 MG, DAILY
     Route: 048
     Dates: start: 20110321
  11. AMLODIN [Concomitant]
     Indication: HYPERTENSION
     Dosage: 5 MG, DAILY
     Route: 048
     Dates: start: 20110321
  12. GOODMIN [Concomitant]
     Indication: ANXIETY DISORDER
     Dosage: 0.25 MG, DAILY
     Route: 048
     Dates: start: 20110322
  13. DOGMATYL [Concomitant]
     Indication: ANXIETY DISORDER
     Dosage: 100 MG, DAILY
     Route: 048
     Dates: start: 20110425
  14. BAYASPIRIN [Concomitant]
     Indication: PROPHYLAXIS
     Dosage: 100 MG, DAILY
     Route: 048
     Dates: start: 20110418
  15. VALTREX [Concomitant]
     Indication: PROPHYLAXIS
     Dosage: 500 MG, DAILY
     Route: 048
     Dates: start: 20130910
  16. PRIMPERAN [Concomitant]
     Indication: PROPHYLAXIS
     Dosage: 5 MG, DAILY
     Route: 048
     Dates: start: 20121002
  17. CLARITH [Concomitant]
     Indication: PLASMA CELL MYELOMA
     Dosage: 200 MG, DAILY
     Route: 048
     Dates: start: 20130901
  18. ZOMETA [Concomitant]
     Indication: PLASMA CELL MYELOMA
     Dosage: 4 MG, DAILY
     Route: 042
     Dates: start: 20131015
  19. VENOGLOBULIN [Concomitant]
     Indication: PLASMA CELL MYELOMA
     Dosage: UNK
     Route: 042
     Dates: start: 20120515
  20. MAGLAX [Suspect]
     Indication: CONSTIPATION
     Dosage: 750 MG, DAILY
     Route: 048
     Dates: start: 20110224, end: 20131210
  21. PURSENNID                          /00571902/ [Suspect]
     Indication: CONSTIPATION
     Dosage: 24 MG, DAILY
     Route: 048
     Dates: start: 20110228, end: 20131210
  22. LAXOBERON [Suspect]
     Indication: CONSTIPATION
     Dosage: UNK
     Dates: start: 20131119, end: 20131208

REACTIONS (6)
  - Drug withdrawal syndrome [Unknown]
  - Liver function test abnormal [Recovered/Resolved]
  - Abdominal pain [Unknown]
  - Diarrhoea [Recovered/Resolved]
  - Vomiting [Recovered/Resolved]
  - Tremor [Unknown]
